FAERS Safety Report 19153204 (Version 2)
Quarter: 2021Q2

REPORT INFORMATION
  Report Type: Spontaneous
  Country: US (occurrence: US)
  Receive Date: 20210419
  Receipt Date: 20210518
  Transmission Date: 20210717
  Serious: No
  Sender: FDA-Public Use
  Company Number: US-GILEAD-2021-0524799

PATIENT
  Sex: Female

DRUGS (4)
  1. FLUTICASONE PROPIONATE. [Concomitant]
     Active Substance: FLUTICASONE PROPIONATE
  2. AMOXICILLIN + CLAVULANIC ACID [Concomitant]
     Active Substance: AMOXICILLIN\CLAVULANIC ACID
  3. EPCLUSA [Suspect]
     Active Substance: SOFOSBUVIR\VELPATASVIR
     Indication: CHRONIC HEPATITIS C
     Dosage: 1 DOSAGE FORM, QD
     Route: 048
  4. EXCEDRIN SINUS [Concomitant]

REACTIONS (4)
  - Hypersensitivity [Recovered/Resolved]
  - Acute sinusitis [Recovered/Resolved]
  - Fatigue [Not Recovered/Not Resolved]
  - Malaise [Unknown]
